FAERS Safety Report 22202823 (Version 1)
Quarter: 2023Q2

REPORT INFORMATION
  Report Type: Spontaneous
  Country: US (occurrence: US)
  Receive Date: 20230412
  Receipt Date: 20230412
  Transmission Date: 20230722
  Serious: No
  Sender: FDA-Public Use
  Company Number: US-PFIZER INC-202300147584

PATIENT
  Age: 75 Year
  Sex: Female

DRUGS (1)
  1. IBRANCE [Suspect]
     Active Substance: PALBOCICLIB
     Dosage: 1 DF, CYCLIC (TAKE 1 CAPSULE BY MOUTH ONCE DAILY ON DAYS 1 THROUGH 21 OF 28 DAY CYCLE)
     Dates: start: 202207

REACTIONS (1)
  - Alopecia [Recovering/Resolving]
